FAERS Safety Report 11129280 (Version 1)
Quarter: 2015Q2

REPORT INFORMATION
  Report Type: Spontaneous
  Country: US (occurrence: US)
  Receive Date: 20150521
  Receipt Date: 20150521
  Transmission Date: 20150821
  Serious: Yes (Other)
  Sender: FDA-Public Use
  Company Number: US-PFIZER INC-2015170893

PATIENT
  Age: 39 Year
  Sex: Female
  Weight: 49 kg

DRUGS (1)
  1. LEVOXYL [Suspect]
     Active Substance: LEVOTHYROXINE SODIUM
     Indication: THYROID CANCER
     Dosage: 0.125 ?G, UNK

REACTIONS (5)
  - Blood calcium decreased [Recovered/Resolved]
  - Blood potassium decreased [Recovered/Resolved]
  - Seizure like phenomena [Recovered/Resolved]
  - Bone density decreased [Recovered/Resolved]
  - Blood phosphorus decreased [Recovered/Resolved]

NARRATIVE: CASE EVENT DATE: 20150517
